FAERS Safety Report 21588262 (Version 1)
Quarter: 2022Q4

REPORT INFORMATION
  Report Type: Spontaneous
  Country: US (occurrence: US)
  Receive Date: 20221114
  Receipt Date: 20221114
  Transmission Date: 20230113
  Serious: No
  Sender: FDA-Public Use
  Company Number: US-ABBVIE-4155024

PATIENT
  Sex: Female

DRUGS (1)
  1. HUMIRA [Suspect]
     Active Substance: ADALIMUMAB
     Indication: Product used for unknown indication
     Dosage: STRENGTH 40MG
     Route: 058

REACTIONS (4)
  - Device issue [Not Recovered/Not Resolved]
  - Injection site mass [Unknown]
  - Off label use [Unknown]
  - Injection site haemorrhage [Unknown]
